FAERS Safety Report 4491241-6 (Version None)
Quarter: 2004Q4

REPORT INFORMATION
  Report Type: 
  Country: None (occurrence: None)
  Receive Date: 20041101
  Receipt Date: 20041101
  Transmission Date: 20050328
  Serious: Yes (Hospitalization)
  Sender: FDA-Public Use
  Company Number: None

PATIENT
  Age: 63 Year
  Sex: Female
  Weight: 84.5 kg

DRUGS (5)
  1. IBUPROFEN [Suspect]
     Indication: BACK PAIN
     Dosage: 1200 BID PO
     Route: 048
  2. ACETAMINOPHEN [Concomitant]
  3. FLUTICOSINE [Concomitant]
  4. GLYBURIDE [Concomitant]
  5. PSEUDOPHED [Concomitant]

REACTIONS (3)
  - FAECES DISCOLOURED [None]
  - MELAENA [None]
  - VOMITING [None]
